FAERS Safety Report 8883364 (Version 3)
Quarter: 2012Q4

REPORT INFORMATION
  Report Type: Report from Study
  Country: NL (occurrence: NL)
  Receive Date: 20121102
  Receipt Date: 20121127
  Transmission Date: 20130627
  Serious: Yes (Hospitalization)
  Sender: FDA-Public Use
  Company Number: NL-JNJFOC-20120814649

PATIENT
  Age: 24 Year
  Sex: Female
  Weight: 39 kg

DRUGS (11)
  1. REMICADE [Suspect]
     Indication: COLITIS ULCERATIVE
     Dosage: 1st dose
     Route: 042
     Dates: start: 20101215
  2. REMICADE [Suspect]
     Indication: COLITIS ULCERATIVE
     Route: 042
     Dates: start: 20101230
  3. REMICADE [Suspect]
     Indication: COLITIS ULCERATIVE
     Route: 042
     Dates: start: 20110127
  4. REMICADE [Suspect]
     Indication: COLITIS ULCERATIVE
     Dosage: last dose
     Route: 042
     Dates: start: 20110324, end: 20110324
  5. CALCICHEW D3 [Concomitant]
     Dosage: dose ^500 mg/ 400IE^
     Route: 048
  6. PARACETAMOL [Concomitant]
  7. ONDANSETRON [Concomitant]
  8. DICLOFENAC [Concomitant]
  9. OMEPRAZOLE [Concomitant]
  10. POTASSIUM [Concomitant]
  11. ANTAGEL [Concomitant]

REACTIONS (2)
  - Ileus [Recovered/Resolved]
  - Resection of rectum [Unknown]
